FAERS Safety Report 10143578 (Version 1)
Quarter: 2014Q2

REPORT INFORMATION
  Report Type: Spontaneous
  Country: FR (occurrence: FR)
  Receive Date: 20140430
  Receipt Date: 20140430
  Transmission Date: 20141212
  Serious: Yes (Hospitalization)
  Sender: FDA-Public Use
  Company Number: FR-PFIZER INC-2014113320

PATIENT
  Age: 44 Year
  Sex: Male

DRUGS (13)
  1. ARACYTINE [Suspect]
     Dosage: 40 MG, SINGLE
     Route: 037
     Dates: start: 20140210, end: 20140210
  2. DEPO-MEDROL [Suspect]
     Dosage: 40 MG, SINGLE
     Route: 037
     Dates: start: 20140210, end: 20140210
  3. GLIVEC [Suspect]
     Dosage: 400 MG, 2X/DAY
     Route: 048
     Dates: start: 20140122, end: 20140212
  4. ONCOVIN [Suspect]
     Dosage: 2 MG, SINGLE
     Route: 042
     Dates: start: 20140122, end: 20140122
  5. ONCOVIN [Suspect]
     Dosage: 2 MG, SINGLE
     Route: 042
     Dates: start: 20140129, end: 20140129
  6. ONCOVIN [Suspect]
     Dosage: 2 MG, SINGLE
     Route: 042
     Dates: start: 20140205, end: 20140205
  7. NEODEX [Suspect]
     Dosage: 40 MG, 1X/DAY ON D1 AND D2 OF EACH COURSE
     Route: 048
     Dates: start: 20140122, end: 20140213
  8. METHOTREXATE BELLON [Suspect]
     Dosage: 15 MG, SINGLE
     Route: 037
     Dates: start: 20140206, end: 20140206
  9. METHOTREXATE BELLON [Suspect]
     Dosage: 15 MG, SINGLE
     Route: 037
     Dates: start: 20140210, end: 20140210
  10. VANCOMYCIN [Concomitant]
     Indication: DEVICE RELATED SEPSIS
     Dosage: 3.5 G, DAILY
     Dates: start: 20140124, end: 20140217
  11. PIPERACILLIN/TAZOBACTAM KABI [Concomitant]
     Indication: TONSILLITIS
     Dosage: 4 G, 3X/DAY
     Route: 042
     Dates: start: 20140118, end: 20140220
  12. ACICLOVIR [Concomitant]
     Dosage: 250 MG, 3X/DAY
     Dates: start: 20140115
  13. EUPANTOL [Concomitant]
     Dosage: 40 MG, DAILY
     Dates: start: 20140115

REACTIONS (1)
  - Hepatitis [Recovered/Resolved]
